FAERS Safety Report 4579774-5 (Version None)
Quarter: 2005Q1

REPORT INFORMATION
  Report Type: 
  Country: None (occurrence: None)
  Receive Date: 20050210
  Receipt Date: 20050202
  Transmission Date: 20050727
  Serious: Yes (Other)
  Sender: FDA-Public Use
  Company Number: 2005-02-0175

PATIENT
  Age: 71 Year
  Sex: Female

DRUGS (3)
  1. INTRON A [Suspect]
     Indication: HEPATITIS C
     Dosage: 6 MIU, INTRAMUSCULAR
     Route: 030
     Dates: start: 20040909, end: 20050202
  2. OMEPRAL (OMEPRAZOLE) TABLETS [Concomitant]
  3. PANALDINE TABLETS [Concomitant]

REACTIONS (2)
  - DIPLOPIA [None]
  - IVTH NERVE PARALYSIS [None]
